FAERS Safety Report 15366327 (Version 3)
Quarter: 2018Q4

REPORT INFORMATION
  Report Type: Spontaneous
  Country: US (occurrence: US)
  Receive Date: 20180910
  Receipt Date: 20181016
  Transmission Date: 20190204
  Serious: No
  Sender: FDA-Public Use
  Company Number: US-SA-2018SA248916

PATIENT
  Age: 54 Year
  Sex: Female

DRUGS (1)
  1. DUPIXENT [Suspect]
     Active Substance: DUPILUMAB
     Dosage: UNK
     Dates: start: 20180101

REACTIONS (4)
  - Erythema [Unknown]
  - Product dose omission [Unknown]
  - Rash generalised [Unknown]
  - Rash [Unknown]

NARRATIVE: CASE EVENT DATE: 20180825
